FAERS Safety Report 15738456 (Version 2)
Quarter: 2019Q1

REPORT INFORMATION
  Report Type: Spontaneous
  Country: US (occurrence: US)
  Receive Date: 20181219
  Receipt Date: 20190118
  Transmission Date: 20190417
  Serious: Yes (Other)
  Sender: FDA-Public Use
  Company Number: US-PFIZER INC-2018513944

PATIENT
  Age: 2 Year
  Sex: Male

DRUGS (2)
  1. THYROXINE [Concomitant]
     Active Substance: LEVOTHYROXINE
     Dosage: UNK
  2. GENOTROPIN [Suspect]
     Active Substance: SOMATROPIN
     Dosage: 0.08 MG/KG, WEEKLY

REACTIONS (3)
  - Hypoglycaemia [Unknown]
  - Intracranial pressure increased [Unknown]
  - Drug dependence [Unknown]
